FAERS Safety Report 4365193-3 (Version None)
Quarter: 2004Q2

REPORT INFORMATION
  Report Type: 
  Country: None (occurrence: None)
  Receive Date: 20040525
  Receipt Date: 20040309
  Transmission Date: 20050107
  Serious: No
  Sender: FDA-Public Use
  Company Number: PHEH2004US01898

PATIENT
  Age: 54 Year
  Sex: Female
  Weight: 56.2 kg

DRUGS (2)
  1. ZELNORM [Suspect]
     Indication: IRRITABLE BOWEL SYNDROME
     Dosage: 6 MG, ONCE/SINGLE, ORAL
     Route: 048
     Dates: start: 20040210
  2. CALCIUM [Concomitant]

REACTIONS (4)
  - FATIGUE [None]
  - FEELING JITTERY [None]
  - INSOMNIA [None]
  - STOMACH DISCOMFORT [None]
